FAERS Safety Report 24687136 (Version 1)
Quarter: 2024Q4

REPORT INFORMATION
  Report Type: Report from Study
  Country: ES (occurrence: ES)
  Receive Date: 20241202
  Receipt Date: 20241202
  Transmission Date: 20250115
  Serious: Yes (Hospitalization, Other)
  Sender: TEVA
  Company Number: ES-TEVA-VS-3269240

PATIENT
  Age: 59 Year
  Sex: Female

DRUGS (6)
  1. TERIPARATIDE [Suspect]
     Active Substance: TERIPARATIDE
     Indication: Osteoporosis
     Route: 065
     Dates: start: 20240827, end: 20241004
  2. CRESTOR [Concomitant]
     Active Substance: ROSUVASTATIN CALCIUM
     Indication: Hypercholesterolaemia
     Dosage: DOSAGE: 1-0-0 START DATE: LONG TIME AGO
     Route: 065
  3. CRESTOR [Concomitant]
     Active Substance: ROSUVASTATIN CALCIUM
     Indication: Hypercholesterolaemia
     Dosage: START DATE: LONG TIME AGO
     Route: 065
     Dates: end: 20241005
  4. CALCIUM PIDOLATE\CHOLECALCIFEROL [Concomitant]
     Active Substance: CALCIUM PIDOLATE\CHOLECALCIFEROL
     Indication: Osteoporosis
     Dosage: DOSAGE: 1-0-0 START DATE: LONG TIME AGO
     Route: 065
  5. CALCIUM PIDOLATE\CHOLECALCIFEROL [Concomitant]
     Active Substance: CALCIUM PIDOLATE\CHOLECALCIFEROL
     Indication: Osteoporosis
     Dosage: START DATE: LONG TIME AGO
     Route: 065
     Dates: end: 20241005
  6. CONDROSAN [Concomitant]
     Indication: Osteoarthritis
     Dosage: START DATE: LONG TIME AGO
     Route: 065
     Dates: end: 20241005

REACTIONS (9)
  - Rectal haemorrhage [Not Recovered/Not Resolved]
  - Pyrexia [Recovered/Resolved]
  - Abdominal distension [Recovered/Resolved]
  - Colitis ulcerative [Not Recovered/Not Resolved]
  - Haematemesis [Recovered/Resolved]
  - Application site erythema [Recovered/Resolved]
  - Abdominal pain [Recovered/Resolved]
  - Asthenia [Not Recovered/Not Resolved]
  - Application site warmth [Recovered/Resolved]

NARRATIVE: CASE EVENT DATE: 20240827
